FAERS Safety Report 20405495 (Version 1)
Quarter: 2022Q1

REPORT INFORMATION
  Report Type: Report from Study
  Country: JP (occurrence: JP)
  Receive Date: 20220131
  Receipt Date: 20220131
  Transmission Date: 20220423
  Serious: Yes (Other)
  Sender: FDA-Public Use
  Company Number: JP-RECORDATI RARE DISEASE INC.-2022000322

PATIENT
  Age: 8 Day
  Sex: Male
  Weight: 3.135 kg

DRUGS (5)
  1. NEOPROFEN [Suspect]
     Active Substance: IBUPROFEN LYSINE
     Indication: Patent ductus arteriosus
     Dosage: 30 MILLIGRAM
     Route: 042
     Dates: start: 20200923, end: 20200923
  2. NEOPROFEN [Suspect]
     Active Substance: IBUPROFEN LYSINE
     Dosage: 16 MILLIGRAM
     Route: 042
     Dates: start: 20200924, end: 20200924
  3. NEOPROFEN [Suspect]
     Active Substance: IBUPROFEN LYSINE
     Dosage: 16 MILLIGRAM
     Route: 042
     Dates: start: 20200925, end: 20200925
  4. FUROSEMIDE [Concomitant]
     Active Substance: FUROSEMIDE
     Indication: Oliguria
     Dosage: UNK
     Route: 048
     Dates: start: 20200920, end: 20200926
  5. SPIRONOLACTONE [Concomitant]
     Active Substance: SPIRONOLACTONE
     Indication: Oliguria
     Dosage: UNK
     Route: 048
     Dates: start: 20200920, end: 20200926

REACTIONS (1)
  - Hyponatraemia [Recovered/Resolved]

NARRATIVE: CASE EVENT DATE: 20200924
